FAERS Safety Report 15952027 (Version 1)
Quarter: 2019Q1

REPORT INFORMATION
  Report Type: Spontaneous
  Country: GB (occurrence: GB)
  Receive Date: 20190211
  Receipt Date: 20190211
  Transmission Date: 20190417
  Serious: Yes (Death, Other)
  Sender: FDA-Public Use
  Company Number: GB-PFIZER INC-2017257255

PATIENT
  Age: 20 Year
  Sex: Male

DRUGS (2)
  1. ECSTASY [Suspect]
     Active Substance: MIDOMAFETAMINE
     Dosage: UNK
  2. XANAX [Suspect]
     Active Substance: ALPRAZOLAM
     Indication: STRESS
     Dosage: UNK

REACTIONS (4)
  - Drug ineffective [Unknown]
  - Overdose [Fatal]
  - Counterfeit product administered [Fatal]
  - Drug dependence [Unknown]
